FAERS Safety Report 17990109 (Version 3)
Quarter: 2021Q1

REPORT INFORMATION
  Report Type: Spontaneous
  Country: US (occurrence: US)
  Receive Date: 20200707
  Receipt Date: 20210315
  Transmission Date: 20210419
  Serious: Yes (Other)
  Sender: FDA-Public Use
  Company Number: US-GLAXOSMITHKLINE-US2020121067

PATIENT
  Sex: Male

DRUGS (9)
  1. RANITIDINE. [Suspect]
     Active Substance: RANITIDINE
     Indication: ULCER
     Dosage: 150 MG, QD
     Route: 065
     Dates: start: 199709, end: 201011
  2. ZANTAC [Suspect]
     Active Substance: RANITIDINE HYDROCHLORIDE
     Indication: ULCER
     Dosage: UNKNOWN AT THIS TIME PRESCRIPTION
     Route: 065
     Dates: start: 198305, end: 199712
  3. ZANTAC [Suspect]
     Active Substance: RANITIDINE HYDROCHLORIDE
     Indication: ULCER
     Dosage: UNKNOWN AT THIS TIME PRESCRIPTION
     Route: 065
     Dates: start: 198305, end: 199712
  4. ZANTAC [Suspect]
     Active Substance: RANITIDINE HYDROCHLORIDE
     Dosage: UNK, QD
     Route: 065
     Dates: start: 198305, end: 199712
  5. ZANTAC [Suspect]
     Active Substance: RANITIDINE HYDROCHLORIDE
     Dosage: UNK, QD
     Route: 065
     Dates: start: 198305, end: 199712
  6. RANITIDINE. [Suspect]
     Active Substance: RANITIDINE
     Dosage: UNK
  7. ZANTAC [Suspect]
     Active Substance: RANITIDINE HYDROCHLORIDE
  8. RANITIDINE. [Suspect]
     Active Substance: RANITIDINE
     Indication: ULCER
     Dosage: 150 MG, QD
     Route: 065
     Dates: start: 199709, end: 201011
  9. RANITIDINE. [Suspect]
     Active Substance: RANITIDINE

REACTIONS (1)
  - Renal cancer [Unknown]
